FAERS Safety Report 12526903 (Version 2)
Quarter: 2018Q3

REPORT INFORMATION
  Report Type: Spontaneous
  Country: US (occurrence: US)
  Receive Date: 20160705
  Receipt Date: 20180704
  Transmission Date: 20181010
  Serious: No
  Sender: FDA-Public Use
  Company Number: US-PFIZER INC-2016290176

PATIENT
  Sex: Female

DRUGS (24)
  1. CLINDAMYCIN HCL [Suspect]
     Active Substance: CLINDAMYCIN HYDROCHLORIDE
     Dosage: UNK
  2. CEFACLOR. [Suspect]
     Active Substance: CEFACLOR
     Dosage: UNK
  3. TIOCONAZOLE. [Suspect]
     Active Substance: TIOCONAZOLE
     Dosage: UNK
  4. CARBAMAZEPINE. [Suspect]
     Active Substance: CARBAMAZEPINE
     Dosage: UNK
  5. CHLORDIAZEPOXIDE HCL [Suspect]
     Active Substance: CHLORDIAZEPOXIDE HYDROCHLORIDE
     Dosage: UNK
  6. PHENYTOIN. [Suspect]
     Active Substance: PHENYTOIN
     Dosage: UNK
  7. CODEINE [Suspect]
     Active Substance: CODEINE
     Dosage: UNK
  8. FACTIVE [Suspect]
     Active Substance: GEMIFLOXACIN MESYLATE
     Dosage: UNK
  9. VALIUM [Suspect]
     Active Substance: DIAZEPAM
     Dosage: UNK
  10. ATROPINE SULFATE. [Suspect]
     Active Substance: ATROPINE SULFATE
     Dosage: UNK
  11. MORPHINE SULFATE. [Suspect]
     Active Substance: MORPHINE SULFATE
     Dosage: UNK
  12. MONISTAT 1 COMBINATION PACK [Suspect]
     Active Substance: MICONAZOLE NITRATE
     Dosage: UNK
  13. DOXYCYCLINE MONOHYDRATE [Suspect]
     Active Substance: DOXYCYCLINE
     Dosage: UNK
  14. METOPROLOL TARTRATE. [Suspect]
     Active Substance: METOPROLOL TARTRATE
     Dosage: UNK
  15. KEFLEX [Suspect]
     Active Substance: CEPHALEXIN
     Dosage: UNK
  16. VERAPAMIL HCL [Suspect]
     Active Substance: VERAPAMIL HYDROCHLORIDE
     Dosage: UNK
  17. TARKA [Suspect]
     Active Substance: TRANDOLAPRIL\VERAPAMIL HYDROCHLORIDE
     Dosage: UNK
  18. TETANUS TOXOID ADSORBED (VACCINE) [Suspect]
     Active Substance: CLOSTRIDIUM TETANI TOXOID ANTIGEN (FORMALDEHYDE INACTIVATED)
     Dosage: UNK
  19. NORVASC [Suspect]
     Active Substance: AMLODIPINE BESYLATE
     Dosage: UNK
  20. CLONIDINE. [Suspect]
     Active Substance: CLONIDINE
     Dosage: UNK
  21. DESLORATADINE. [Suspect]
     Active Substance: DESLORATADINE
     Dosage: UNK
  22. SULTRIN [Suspect]
     Active Substance: SULFABENZAMIDE\SULFACETAMIDE\SULFATHIAZOLE
     Dosage: UNK
  23. CIPROFLOXACIN. [Suspect]
     Active Substance: CIPROFLOXACIN
     Dosage: UNK
  24. IODINE. [Suspect]
     Active Substance: IODINE
     Dosage: UNK

REACTIONS (1)
  - Drug hypersensitivity [Unknown]
